FAERS Safety Report 17075339 (Version 1)
Quarter: 2019Q4

REPORT INFORMATION
  Report Type: Spontaneous
  Country: US (occurrence: US)
  Receive Date: 20191028
  Receipt Date: 20191028
  Transmission Date: 20200122
  Serious: Yes (Hospitalization)
  Sender: FDA-Public Use
  Company Number: None

PATIENT
  Sex: Female

DRUGS (8)
  1. FEROSUL [Concomitant]
     Active Substance: FERROUS SULFATE
  2. LANTUS SOLOS [Concomitant]
  3. ROSUVASTATIN. [Concomitant]
     Active Substance: ROSUVASTATIN
  4. XARELTO [Concomitant]
     Active Substance: RIVAROXABAN
  5. PEGASYS [Suspect]
     Active Substance: PEGINTERFERON ALFA-2A
     Route: 058
     Dates: start: 20190706
  6. NOVOLOG [Concomitant]
     Active Substance: INSULIN ASPART
  7. TRULICITY [Concomitant]
     Active Substance: DULAGLUTIDE
  8. HYDROXYUREA. [Concomitant]
     Active Substance: HYDROXYUREA

REACTIONS (1)
  - Alopecia [None]
